FAERS Safety Report 10694576 (Version 1)
Quarter: 2015Q1

REPORT INFORMATION
  Report Type: Spontaneous
  Country: US (occurrence: US)
  Receive Date: 20150107
  Receipt Date: 20150107
  Transmission Date: 20150721
  Serious: Yes (Death)
  Sender: FDA-Public Use
  Company Number: US-ROCHE-1517950

PATIENT
  Sex: Female
  Weight: 64.4 kg

DRUGS (2)
  1. XOLAIR [Suspect]
     Active Substance: OMALIZUMAB
     Dosage: PATIENT WAS ACTIVE ON XOLAIR AT THE TIME OF DEATH.
     Route: 058
     Dates: start: 20141223
  2. XOLAIR [Suspect]
     Active Substance: OMALIZUMAB
     Indication: ASTHMA
     Route: 058
     Dates: start: 20061206

REACTIONS (2)
  - Disease complication [Fatal]
  - Pneumonia [Fatal]
